FAERS Safety Report 14085195 (Version 1)
Quarter: 2017Q4

REPORT INFORMATION
  Report Type: Spontaneous
  Country: US (occurrence: US)
  Receive Date: 20171013
  Receipt Date: 20171013
  Transmission Date: 20180321
  Serious: Yes (Hospitalization)
  Sender: FDA-Public Use
  Company Number: US-AXELLIA-001181

PATIENT
  Age: 79 Year
  Sex: Male
  Weight: 150 kg

DRUGS (1)
  1. VANCOMYCIN [Suspect]
     Active Substance: VANCOMYCIN
     Indication: STAPHYLOCOCCAL INFECTION
     Dosage: INTRAVENOUS VIA A PERIPHERALLY INSERTED CENTRAL CATHETER LINE, 2 GM EVERY 12 HR ACCORDING TO WEIGHT
     Route: 042

REACTIONS (2)
  - Tubulointerstitial nephritis [Not Recovered/Not Resolved]
  - Hypersensitivity vasculitis [Recovered/Resolved]
